FAERS Safety Report 9806459 (Version 5)
Quarter: 2014Q2

REPORT INFORMATION
  Report Type: Spontaneous
  Country: JP (occurrence: None)
  Receive Date: 20140107
  Receipt Date: 20140620
  Transmission Date: 20141212
  Serious: Yes (Hospitalization)
  Sender: FDA-Public Use
  Company Number: 2013JP002920

PATIENT
  Age: 72 Year
  Sex: Female
  Weight: 46.3 kg

DRUGS (22)
  1. PONATINIB (AP24534) TABLET [Suspect]
     Indication: CHRONIC MYELOID LEUKAEMIA
     Route: 048
     Dates: start: 20130603, end: 20130903
  2. DEPAS (ETIZOLAM) [Concomitant]
  3. AMOBAN (ZOPICLONE) [Concomitant]
  4. NORVASC (AMLODIPINE BESILATE) [Concomitant]
  5. PREDNISOLONE (PREDNISOLONE ACETATE) [Concomitant]
  6. THYRADIN-S (LEVOTHYROXINE SODIUM) [Concomitant]
  7. TAKEPRON (LANSOPRAZOLE) [Concomitant]
  8. NU-LOTAN (LOSARTAN POTASSIUM) [Concomitant]
  9. MAINTATE (BISOPROLOL FUMARATE) [Concomitant]
  10. LIVALO (PITAVASTATIN CALCIUM) [Concomitant]
  11. SIGMART (NICORANDIL) [Concomitant]
  12. BONOTEO (MINODRONIC ACID) [Concomitant]
  13. LOXONIN (LOXOPROFEN SODIUM) [Concomitant]
  14. DERMOVATE (CLOBETASOL PROPIONATE) [Concomitant]
  15. HIRUDOID (MUCOPOLYSACCHARIDE POLYSULFURIC ACID ESTER) [Concomitant]
  16. ISODINE (POVIDONE-IODINE) [Concomitant]
  17. BORRAZA-G (LIDOCAINE, TRIBENOSIDE) [Concomitant]
  18. BAYASPIRIN (ACETYLSALICYLIC ACID) (ACETYLSALICYLIC ACID) [Concomitant]
  19. PLAVIX (CLOPIDOGREL BISULFATE) [Concomitant]
  20. ZETIA (EZETIMIBE) [Concomitant]
  21. LAC-B (BIFDOBACTERIUM LACTIS) [Concomitant]
  22. CARBENIN (BETAMIPRON, PANIPENEM) [Concomitant]

REACTIONS (9)
  - Enteritis infectious [None]
  - Platelet count decreased [None]
  - Abdominal distension [None]
  - Myocardial infarction [None]
  - Diarrhoea [None]
  - Abdominal pain [None]
  - C-reactive protein increased [None]
  - Escherichia test positive [None]
  - Neutropenia [None]
